FAERS Safety Report 14588410 (Version 1)
Quarter: 2018Q1

REPORT INFORMATION
  Report Type: Spontaneous
  Country: US (occurrence: US)
  Receive Date: 20180301
  Receipt Date: 20180301
  Transmission Date: 20180509
  Serious: No
  Sender: FDA-Public Use
  Company Number: US-JUBILANT CADISTA PHARMACEUTICALS-2017JUB00402

PATIENT
  Sex: Female

DRUGS (1)
  1. LAMOTRIGINE. [Suspect]
     Active Substance: LAMOTRIGINE
     Dosage: 150 MG, 1X/DAY
     Route: 048

REACTIONS (7)
  - Headache [Unknown]
  - Muscle twitching [Unknown]
  - Sleep disorder [Unknown]
  - Disturbance in attention [Unknown]
  - Allergic reaction to excipient [Unknown]
  - Nausea [Unknown]
  - Feeling abnormal [Unknown]
